FAERS Safety Report 7145098-5 (Version None)
Quarter: 2010Q4

REPORT INFORMATION
  Report Type: 
  Country: None (occurrence: None)
  Receive Date: 20101208
  Receipt Date: 20101203
  Transmission Date: 20110411
  Serious: Yes (Life-Threatening, Hospitalization)
  Sender: FDA-Public Use
  Company Number: PHHY2010FR81229

PATIENT
  Age: 27 Year
  Sex: Female

DRUGS (2)
  1. SYNTOCINON [Suspect]
     Indication: UTERINE ATONY
     Dosage: 05 IU IN 50 ML OF GLUCOSE 10 %
     Route: 042
     Dates: start: 20100816, end: 20100816
  2. GLUCOSE [Suspect]
     Dosage: UNK
     Route: 042
     Dates: start: 20100816

REACTIONS (2)
  - CONVULSION [None]
  - HYPOGLYCAEMIA [None]
